FAERS Safety Report 8018703 (Version 2)
Quarter: 2015Q1

REPORT INFORMATION
  Report Type: Spontaneous
  Country: GB (occurrence: GB)
  Receive Date: 20110701
  Receipt Date: 20150112
  Transmission Date: 20150721
  Serious: Yes (Disabling)
  Sender: FDA-Public Use
  Company Number: GB-ARROW GEN-2011-09153

PATIENT
  Age: 42 Year
  Sex: Male

DRUGS (3)
  1. LISINOPRIL (UNKNOWN) [Suspect]
     Active Substance: LISINOPRIL
     Indication: HYPERTENSION
     Dosage: 10 MG, DAILY
     Route: 048
     Dates: start: 20101213, end: 20110311
  2. FOSTAIR [Concomitant]
     Active Substance: BECLOMETHASONE\FORMOTEROL
     Indication: ASTHMA
     Dosage: 2 DF, BID; 100 MCG/6 MCG
     Route: 055
     Dates: start: 20110201
  3. SALBUTAMOL [Concomitant]
     Active Substance: ALBUTEROL
     Indication: ASTHMA
     Dosage: 2 DF, PRN
     Route: 055

REACTIONS (8)
  - Peripheral coldness [Recovered/Resolved with Sequelae]
  - Nasal dryness [Recovered/Resolved with Sequelae]
  - Lip dry [Recovered/Resolved with Sequelae]
  - Dry skin [Recovered/Resolved with Sequelae]
  - Feeling cold [Recovered/Resolved with Sequelae]
  - Sensory loss [Recovered/Resolved with Sequelae]
  - Raynaud^s phenomenon [Recovered/Resolved with Sequelae]
  - Increased tendency to bruise [Recovered/Resolved with Sequelae]

NARRATIVE: CASE EVENT DATE: 20101213
